FAERS Safety Report 20502483 (Version 1)
Quarter: 2022Q1

REPORT INFORMATION
  Report Type: Spontaneous
  Country: FR (occurrence: FR)
  Receive Date: 20220222
  Receipt Date: 20220222
  Transmission Date: 20220423
  Serious: Yes (Other)
  Sender: FDA-Public Use
  Company Number: FR-BAUSCH-BL-2022-004905

PATIENT
  Age: 77 Year
  Sex: Female
  Weight: 74 kg

DRUGS (1)
  1. IMIQUIMOD [Suspect]
     Active Substance: IMIQUIMOD
     Indication: Actinic keratosis
     Route: 003
     Dates: start: 20211207, end: 20211222

REACTIONS (2)
  - Superinfection bacterial [Recovering/Resolving]
  - Administration site inflammation [Recovering/Resolving]

NARRATIVE: CASE EVENT DATE: 20211221
